FAERS Safety Report 19071627 (Version 1)
Quarter: 2021Q1

REPORT INFORMATION
  Report Type: Spontaneous
  Country: DE (occurrence: DE)
  Receive Date: 20210330
  Receipt Date: 20210330
  Transmission Date: 20210420
  Serious: Yes (Hospitalization)
  Sender: FDA-Public Use
  Company Number: DE-TEVA-2021-DE-1894470

PATIENT
  Age: 57 Year
  Sex: Male
  Weight: 130 kg

DRUGS (4)
  1. RAMIPRIL. [Concomitant]
     Active Substance: RAMIPRIL
     Dosage: 5 MILLIGRAM DAILY; 1?0?0?0
  2. COLECALCIFEROL [Concomitant]
     Active Substance: CHOLECALCIFEROL
     Dosage: 20,000 IU / EVERY 2 WEEKS, 1X SATURDAY
  3. PREDNISOLON [Suspect]
     Active Substance: PREDNISOLONE
     Dosage: 10 MILLIGRAM DAILY; 1?0?0?0
  4. RAMIPRIL/HYDROCHLOROTHIAZID [Concomitant]
     Active Substance: HYDROCHLOROTHIAZIDE\RAMIPRIL
     Dosage: 1 DOSAGE FORMS DAILY; 25 | 5 MG, 1?0?0?0

REACTIONS (4)
  - Dyspnoea exertional [Unknown]
  - Asthenia [Unknown]
  - Atrial fibrillation [Unknown]
  - Dizziness [Unknown]
